FAERS Safety Report 9453225 (Version 2)
Quarter: 2013Q3

REPORT INFORMATION
  Report Type: Spontaneous
  Country: US (occurrence: US)
  Receive Date: 20130812
  Receipt Date: 20130820
  Transmission Date: 20140515
  Serious: Yes (Disabling)
  Sender: FDA-Public Use
  Company Number: US-PFIZER INC-2013232657

PATIENT
  Age: 54 Year
  Sex: Female
  Weight: 58.95 kg

DRUGS (3)
  1. LYRICA [Suspect]
     Indication: FIBROMYALGIA
     Dosage: UNK
     Route: 048
     Dates: end: 201307
  2. TOPIRAMATE [Concomitant]
     Dosage: 50 MG, UNK
  3. BACLOFEN [Concomitant]
     Dosage: UNK

REACTIONS (2)
  - Osteoarthritis [Unknown]
  - Drug withdrawal syndrome [Unknown]
